FAERS Safety Report 15450918 (Version 1)
Quarter: 2018Q3

REPORT INFORMATION
  Report Type: Spontaneous
  Country: US (occurrence: US)
  Receive Date: 20180927
  Receipt Date: 20180927
  Transmission Date: 20181010
  Serious: Yes (Life-Threatening, Hospitalization, Disabling, Other)
  Sender: FDA-Public Use
  Company Number: None

PATIENT
  Age: 56 Year
  Sex: Female
  Weight: 57.6 kg

DRUGS (5)
  1. ACTOS [Suspect]
     Active Substance: PIOGLITAZONE HYDROCHLORIDE
  2. METFORMIN [Suspect]
     Active Substance: METFORMIN HYDROCHLORIDE
  3. SEROQUEL [Suspect]
     Active Substance: QUETIAPINE FUMARATE
     Indication: SCHIZOAFFECTIVE DISORDER
  4. LEXAPRO [Suspect]
     Active Substance: ESCITALOPRAM OXALATE
  5. ABILIFY [Suspect]
     Active Substance: ARIPIPRAZOLE

REACTIONS (16)
  - Diabetes mellitus [None]
  - Hyperglycaemia [None]
  - Gastrooesophageal reflux disease [None]
  - White blood cell count increased [None]
  - Parathyroid tumour [None]
  - Viral infection [None]
  - Adrenal neoplasm [None]
  - Hyperlipidaemia [None]
  - Unevaluable event [None]
  - Cardiac failure congestive [None]
  - Thyroid neoplasm [None]
  - Blood pressure increased [None]
  - Blood cholesterol increased [None]
  - Pancreatic disorder [None]
  - Red blood cell count decreased [None]
  - Neoplasm malignant [None]

NARRATIVE: CASE EVENT DATE: 20140905
